FAERS Safety Report 7690229-1 (Version None)
Quarter: 2011Q3

REPORT INFORMATION
  Report Type: 
  Country: None (occurrence: None)
  Receive Date: 20110812
  Receipt Date: 20110801
  Transmission Date: 20111222
  Serious: Yes (Death, Life-Threatening, Hospitalization)
  Sender: FDA-Public Use
  Company Number: WAES 1002ISR00006

PATIENT
  Age: 61 Year
  Sex: Male

DRUGS (5)
  1. CAP VORINOSTAT [Suspect]
     Dosage: 300 MG/BID/PO
     Route: 048
     Dates: start: 20100126, end: 20100128
  2. ACETAMINOPHEN [Concomitant]
  3. IBUPROFEN IRON (UNSPECIFIED) [Concomitant]
  4. CYANOCOBALAMIN (+) FOLIC ACID [Concomitant]
  5. DARBEPOETIN ALFA [Concomitant]

REACTIONS (2)
  - DISEASE PROGRESSION [None]
  - DYSPNOEA [None]
